FAERS Safety Report 4361905-3 (Version None)
Quarter: 2004Q2

REPORT INFORMATION
  Report Type: 
  Country: None (occurrence: None)
  Receive Date: 20040521
  Receipt Date: 20030807
  Transmission Date: 20050107
  Serious: No
  Sender: FDA-Public Use
  Company Number: US-GLAXOSMITHKLINE-A0422176A

PATIENT
  Age: 72 Year
  Sex: Female

DRUGS (1)
  1. CHLORPROMAZINE [Suspect]
     Indication: SCHIZOPHRENIA
     Dosage: 50MG UNKNOWN
     Route: 048
     Dates: start: 20010101, end: 20010101

REACTIONS (1)
  - SOMNOLENCE [None]
